FAERS Safety Report 8822605 (Version 3)
Quarter: 2013Q3

REPORT INFORMATION
  Report Type: Report from Study
  Country: US (occurrence: US)
  Receive Date: 20121003
  Receipt Date: 20130711
  Transmission Date: 20140515
  Serious: Yes (Life-Threatening, Other)
  Sender: FDA-Public Use
  Company Number: US-ACTELION-A-US2012-69058

PATIENT
  Age: 30 Year
  Sex: Female

DRUGS (1)
  1. VELETRI [Suspect]
     Indication: PULMONARY ARTERIAL HYPERTENSION
     Dosage: 11 NG/KG, PER MIN
     Route: 042
     Dates: start: 201207, end: 2013

REACTIONS (4)
  - Renal stone removal [Unknown]
  - Pregnancy [Recovered/Resolved]
  - Kidney infection [Unknown]
  - Normal newborn [Unknown]
